FAERS Safety Report 8712505 (Version 2)
Quarter: 2012Q4

REPORT INFORMATION
  Report Type: 
  Country: NL (occurrence: NL)
  Receive Date: 20120808
  Receipt Date: 20120828
  Transmission Date: 20130627
  Serious: Yes (Death)
  Sender: FDA-Public Use
  Company Number: PHHY2012NL068033

PATIENT
  Sex: Male
  Weight: 94 kg

DRUGS (4)
  1. ZOMETA [Suspect]
     Indication: PROSTATE CANCER METASTATIC
     Dosage: 4 mg per 100 ml solution once in 84 days
     Route: 042
  2. ZOMETA [Suspect]
     Dosage: 4 mg per 100 ml solution once in 84 days
     Route: 042
     Dates: start: 20101201
  3. ZOMETA [Suspect]
     Dosage: 4 mg per 100 ml solution once in 84 days
     Route: 042
     Dates: start: 20120119
  4. ZOMETA [Suspect]
     Dosage: 4 mg per 100 ml solution once in 84 days
     Route: 042
     Dates: start: 20120426

REACTIONS (3)
  - Neoplasm progression [Fatal]
  - Malignant neoplasm progression [Fatal]
  - Terminal state [Fatal]
